FAERS Safety Report 23345042 (Version 1)
Quarter: 2023Q4

REPORT INFORMATION
  Report Type: Spontaneous
  Country: JP (occurrence: JP)
  Receive Date: 20231228
  Receipt Date: 20231228
  Transmission Date: 20240109
  Serious: Yes (Other)
  Sender: FDA-Public Use
  Company Number: JP-GLAXOSMITHKLINE-JP2023JPN180802

PATIENT

DRUGS (2)
  1. DAPRODUSTAT [Suspect]
     Active Substance: DAPRODUSTAT
     Indication: Nephrogenic anaemia
     Dosage: 8 MG
  2. KREMEZIN [Suspect]
     Active Substance: ACTIVATED CHARCOAL
     Dosage: UNK

REACTIONS (2)
  - Retinal haemorrhage [Unknown]
  - Hyperaemia [Unknown]
